FAERS Safety Report 25166537 (Version 1)
Quarter: 2025Q2

REPORT INFORMATION
  Report Type: Spontaneous
  Country: US (occurrence: US)
  Receive Date: 20250407
  Receipt Date: 20250407
  Transmission Date: 20250716
  Serious: No
  Sender: NOVITIUM PHARMA
  Company Number: US-NOVITIUMPHARMA-2025USNVP00776

PATIENT
  Age: 42 Year
  Sex: Female

DRUGS (8)
  1. PROCHLORPERAZINE MALEATE [Suspect]
     Active Substance: PROCHLORPERAZINE MALEATE
     Indication: Nausea
  2. PROCHLORPERAZINE MALEATE [Suspect]
     Active Substance: PROCHLORPERAZINE MALEATE
     Indication: Vomiting
  3. NIROGACESTAT [Concomitant]
     Active Substance: NIROGACESTAT
     Indication: Connective tissue neoplasm
     Route: 048
     Dates: start: 20241001, end: 20241110
  4. NIROGACESTAT [Concomitant]
     Active Substance: NIROGACESTAT
     Indication: Soft tissue neoplasm
     Dates: start: 20241111
  5. NIROGACESTAT [Concomitant]
     Active Substance: NIROGACESTAT
     Dates: start: 20241216
  6. Atropine diphenoxylate [Concomitant]
     Indication: Product used for unknown indication
     Dates: start: 20241009
  7. LOPERAMIDE [Concomitant]
     Active Substance: LOPERAMIDE
     Indication: Product used for unknown indication
  8. IBUPROFEN [Concomitant]
     Active Substance: IBUPROFEN
     Indication: Pain

REACTIONS (25)
  - Crying [Recovered/Resolved]
  - Pruritus [Unknown]
  - Cough [Unknown]
  - Oropharyngeal pain [Unknown]
  - Fatigue [Not Recovered/Not Resolved]
  - Productive cough [Unknown]
  - Illness [Unknown]
  - Somnolence [Unknown]
  - Diarrhoea [Recovering/Resolving]
  - Hypophagia [Unknown]
  - Tumour pain [Unknown]
  - Retching [Recovered/Resolved]
  - Nausea [Recovering/Resolving]
  - Headache [Unknown]
  - Feeling abnormal [Unknown]
  - Pain [Unknown]
  - Influenza like illness [Unknown]
  - Insomnia [Unknown]
  - Restless legs syndrome [Unknown]
  - Vomiting [Unknown]
  - Pyrexia [Unknown]
  - Chills [Unknown]
  - Migraine [Unknown]
  - Abdominal pain [Unknown]
  - Product dose omission issue [Unknown]

NARRATIVE: CASE EVENT DATE: 20241001
